FAERS Safety Report 23141711 (Version 2)
Quarter: 2024Q1

REPORT INFORMATION
  Report Type: Other
  Country: DE (occurrence: None)
  Receive Date: 20231103
  Receipt Date: 20240328
  Transmission Date: 20240410
  Serious: Yes (Death, Other)
  Sender: FDA-Public Use
  Company Number: DE-ROCHE-3449663

PATIENT

DRUGS (2)
  1. ATEZOLIZUMAB [Suspect]
     Active Substance: ATEZOLIZUMAB
     Indication: Hepatocellular carcinoma
     Route: 065
  2. BEVACIZUMAB [Suspect]
     Active Substance: BEVACIZUMAB
     Indication: Hepatocellular carcinoma
     Route: 065

REACTIONS (9)
  - Thrombosis [Fatal]
  - Haemorrhage [Unknown]
  - Gastric ulcer perforation [Unknown]
  - Osteomyelitis [Unknown]
  - Proteinuria [Unknown]
  - Infection [Unknown]
  - Hyperglycaemia [Unknown]
  - Disease progression [Unknown]
  - Drug ineffective [Unknown]
